FAERS Safety Report 15253574 (Version 1)
Quarter: 2018Q3

REPORT INFORMATION
  Report Type: Spontaneous
  Country: US (occurrence: US)
  Receive Date: 20180808
  Receipt Date: 20180808
  Transmission Date: 20181010
  Serious: Yes (Life-Threatening, Other)
  Sender: FDA-Public Use
  Company Number: US-TORRENT-00006708

PATIENT
  Sex: Female

DRUGS (5)
  1. LEVETIRACETAM. [Suspect]
     Active Substance: LEVETIRACETAM
     Indication: CONVULSION NEONATAL
     Dosage: UNKNOWN
  2. PYRIDOXINE [Suspect]
     Active Substance: PYRIDOXINE
     Indication: CONVULSION NEONATAL
     Dosage: UNKNOWN
  3. PHENOBARBITAL. [Concomitant]
     Active Substance: PHENOBARBITAL
     Indication: CONVULSION NEONATAL
     Dosage: UNKNOWN
  4. TOPIRAMATE. [Suspect]
     Active Substance: TOPIRAMATE
     Indication: CONVULSION NEONATAL
     Dosage: UNKNOWN
     Route: 048
  5. FOSPHENYTOIN [Concomitant]
     Active Substance: FOSPHENYTOIN
     Indication: CONVULSION NEONATAL
     Dosage: UNKNOWN

REACTIONS (3)
  - Drug administered to patient of inappropriate age [Unknown]
  - Necrotising colitis [Unknown]
  - Drug ineffective [Unknown]
